FAERS Safety Report 9605790 (Version 2)
Quarter: 2013Q4

REPORT INFORMATION
  Report Type: Spontaneous
  Country: US (occurrence: US)
  Receive Date: 20131008
  Receipt Date: 20131008
  Transmission Date: 20140711
  Serious: No
  Sender: FDA-Public Use
  Company Number: US-AMGEN-USASP2013040644

PATIENT
  Age: 78 Year
  Sex: Male
  Weight: 108.84 kg

DRUGS (2)
  1. XGEVA [Suspect]
     Indication: METASTASES TO BONE
     Dosage: 120 MG, QMO
     Route: 058
     Dates: start: 20120531
  2. XGEVA [Suspect]

REACTIONS (4)
  - Pain in extremity [Not Recovered/Not Resolved]
  - Pain in jaw [Not Recovered/Not Resolved]
  - Temporomandibular joint syndrome [Recovered/Resolved]
  - Carpal tunnel syndrome [Unknown]
